FAERS Safety Report 13908280 (Version 1)
Quarter: 2017Q3

REPORT INFORMATION
  Report Type: Other
  Country: None (occurrence: AU)
  Receive Date: 20170826
  Receipt Date: 20170826
  Transmission Date: 20171127
  Serious: Yes (Death)
  Sender: FDA-Public Use
  Company Number: AU-ALSI-201700261

PATIENT
  Age: 9 Month
  Sex: Female

DRUGS (2)
  1. CARBON DIXODE [Suspect]
     Active Substance: CARBON DIOXIDE
  2. OXYGEN. [Suspect]
     Active Substance: OXYGEN

REACTIONS (3)
  - Accidental underdose [Fatal]
  - Brain injury [Fatal]
  - Wrong drug administered [Fatal]
